FAERS Safety Report 6937482-7 (Version None)
Quarter: 2010Q3

REPORT INFORMATION
  Report Type: 
  Country: None (occurrence: None)
  Receive Date: 20100823
  Receipt Date: 20100823
  Transmission Date: 20110219
  Serious: Yes (Death, Life-Threatening)
  Sender: FDA-Public Use
  Company Number: None

PATIENT
  Age: 82 Year
  Sex: Female
  Weight: 39.9165 kg

DRUGS (2)
  1. FENTANYL CITRATE [Suspect]
     Indication: PAIN MANAGEMENT
     Dosage: IV
     Route: 042
     Dates: start: 20070610, end: 20070701
  2. FENTANYL CITRATE [Suspect]
     Indication: PALLIATIVE CARE
     Dosage: IV
     Route: 042
     Dates: start: 20070610, end: 20070701

REACTIONS (9)
  - APNOEA [None]
  - ARRHYTHMIA [None]
  - DRUG PRESCRIBING ERROR [None]
  - GASTROINTESTINAL DISORDER [None]
  - MYOCARDIAL INFARCTION [None]
  - OEDEMA [None]
  - RENAL FAILURE [None]
  - RESPIRATORY RATE DECREASED [None]
  - SEDATION [None]
